FAERS Safety Report 8844097 (Version 11)
Quarter: 2019Q2

REPORT INFORMATION
  Report Type: Report from Study
  Country: CA (occurrence: CA)
  Receive Date: 20121016
  Receipt Date: 20190627
  Transmission Date: 20190711
  Serious: Yes (Hospitalization, Other)
  Sender: FDA-Public Use
  Company Number: PHHY2011CA15037

PATIENT
  Age: 74 Year
  Sex: Female

DRUGS (9)
  1. SANDOSTATIN LAR DEPOT [Suspect]
     Active Substance: OCTREOTIDE ACETATE
     Dosage: 10 MG, EVERY 30 DAYS
     Route: 030
     Dates: start: 2010
  2. CORTEF [Concomitant]
     Active Substance: HYDROCORTISONE
     Indication: PRODUCT USED FOR UNKNOWN INDICATION
     Dosage: UNK UNK, BID
     Route: 065
  3. SANDOSTATIN LAR DEPOT [Suspect]
     Active Substance: OCTREOTIDE ACETATE
     Dosage: 10 MG, Q5W
     Route: 030
  4. SANDOSTATIN LAR DEPOT [Suspect]
     Active Substance: OCTREOTIDE ACETATE
     Indication: ACROMEGALY
     Dosage: 10 MG, QMO
     Route: 030
     Dates: start: 20100818
  5. ATENOLOL. [Concomitant]
     Active Substance: ATENOLOL
     Indication: PRODUCT USED FOR UNKNOWN INDICATION
     Dosage: 25 MG, QD
     Route: 065
  6. SANDOSTATIN LAR DEPOT [Suspect]
     Active Substance: OCTREOTIDE ACETATE
     Dosage: 10 MG, Q5W (EVERY FIVE WEEKS)
     Route: 030
  7. TYLENOL [Concomitant]
     Active Substance: ACETAMINOPHEN
     Indication: PRODUCT USED FOR UNKNOWN INDICATION
     Route: 065
  8. CALCIUM [Concomitant]
     Active Substance: CALCIUM
     Indication: PRODUCT USED FOR UNKNOWN INDICATION
     Route: 065
  9. VITALUX [Concomitant]
     Active Substance: MINERALS\VITAMINS
     Indication: PRODUCT USED FOR UNKNOWN INDICATION
     Route: 065

REACTIONS (16)
  - Infection [Recovering/Resolving]
  - Haemoglobin increased [Unknown]
  - Inappropriate schedule of product administration [Unknown]
  - Balance disorder [Unknown]
  - Blood iron decreased [Unknown]
  - Diarrhoea [Recovered/Resolved]
  - Headache [Unknown]
  - Blood glucose decreased [Recovering/Resolving]
  - Fall [Unknown]
  - Contusion [Unknown]
  - Mouth ulceration [Unknown]
  - Vitamin D decreased [Unknown]
  - Complication associated with device [Unknown]
  - Hot flush [Unknown]
  - Feeling abnormal [Unknown]
  - Arthralgia [Unknown]

NARRATIVE: CASE EVENT DATE: 201408
